FAERS Safety Report 6069442-5 (Version None)
Quarter: 2009Q1

REPORT INFORMATION
  Report Type: 
  Country: None (occurrence: None)
  Receive Date: 20090206
  Receipt Date: 20090130
  Transmission Date: 20090719
  Serious: Yes (Hospitalization)
  Sender: FDA-Public Use
  Company Number: US-GENENTECH-254324

PATIENT
  Sex: Male
  Weight: 91 kg

DRUGS (17)
  1. BLINDED RITUXIMAB [Suspect]
     Indication: ANTI-NEUTROPHIL CYTOPLASMIC ANTIBODY POSITIVE VASCULITIS
     Dosage: 825 MG, UNK
     Route: 042
     Dates: start: 20070517, end: 20070607
  2. RITUXAN [Suspect]
     Indication: ANTI-NEUTROPHIL CYTOPLASMIC ANTIBODY POSITIVE VASCULITIS
     Dosage: 832 MG, UNK
     Dates: start: 20080104
  3. RITUXAN [Suspect]
     Dosage: 808 MG, UNK
     Dates: start: 20081112
  4. CYCLOPHOSPHAMIDE [Suspect]
     Indication: ANTI-NEUTROPHIL CYTOPLASMIC ANTIBODY POSITIVE VASCULITIS
     Dosage: 100-150 MG, QD
     Route: 048
     Dates: start: 20070517
  5. AZATHIOPRINE OR PLACEBO [Suspect]
     Indication: ANTI-NEUTROPHIL CYTOPLASMIC ANTIBODY POSITIVE VASCULITIS
     Dosage: 50-200 MG, QD
     Route: 048
     Dates: start: 20070919, end: 20080103
  6. ZETIA [Concomitant]
     Indication: DRUG USE FOR UNKNOWN INDICATION
     Dates: start: 20060101
  7. NEPHROVITE [Concomitant]
     Indication: DRUG USE FOR UNKNOWN INDICATION
     Dates: start: 20070518
  8. PEPCID [Concomitant]
     Indication: DRUG USE FOR UNKNOWN INDICATION
     Dates: start: 20070518
  9. CA W VIT D [Concomitant]
     Indication: DRUG USE FOR UNKNOWN INDICATION
     Dates: start: 20070518
  10. AMBIEN [Concomitant]
     Indication: DRUG USE FOR UNKNOWN INDICATION
     Dates: start: 20070525
  11. ROBITUSSIN PRODUCT NOS [Concomitant]
     Indication: DRUG USE FOR UNKNOWN INDICATION
     Dates: start: 20070608
  12. TYLENOL [Concomitant]
     Indication: DRUG USE FOR UNKNOWN INDICATION
     Dates: start: 20070608
  13. CALTRATE [Concomitant]
     Indication: DRUG USE FOR UNKNOWN INDICATION
     Dates: start: 20070801
  14. PREDNISONE [Concomitant]
     Indication: WEGENER'S GRANULOMATOSIS
     Dosage: 80 MG, UNK
     Route: 048
     Dates: start: 20081109
  15. BENADRYL [Concomitant]
     Indication: PRURITUS
     Dosage: UNK
     Route: 048
     Dates: start: 20080101
  16. CARDIZEM [Concomitant]
     Indication: HYPERTENSION
     Dosage: UNK
     Dates: start: 20080911
  17. ZOCOR [Concomitant]
     Indication: BLOOD CHOLESTEROL INCREASED
     Dosage: 40 MG, UNK
     Route: 048
     Dates: start: 20081009, end: 20081109

REACTIONS (1)
  - WEGENER'S GRANULOMATOSIS [None]
